FAERS Safety Report 11358721 (Version 1)
Quarter: 2015Q3

REPORT INFORMATION
  Report Type: Spontaneous
  Country: US (occurrence: None)
  Receive Date: 20150716
  Receipt Date: 20150716
  Transmission Date: 20151125
  Serious: Yes (Hospitalization, Other)
  Sender: FDA-Public Use
  Company Number: 2015PROUSA04283

PATIENT
  Age: 79 Year
  Sex: Male

DRUGS (1)
  1. PROVENGE [Suspect]
     Active Substance: SIPULEUCEL-T
     Indication: PROSTATE CANCER METASTATIC
     Dosage: 250 ML, SINGLE INTRAVENOUS
     Route: 042
     Dates: start: 20150115, end: 20150115

REACTIONS (4)
  - Haematuria [None]
  - Flank pain [None]
  - Blood creatinine increased [None]
  - Metastases to bladder [None]

NARRATIVE: CASE EVENT DATE: 201501
